FAERS Safety Report 5222043-0 (Version None)
Quarter: 2007Q1

REPORT INFORMATION
  Report Type: 
  Country: None (occurrence: None)
  Receive Date: 20070129
  Receipt Date: 20060412
  Transmission Date: 20070707
  Serious: No
  Sender: FDA-Public Use
  Company Number: TAP2006Q00606

PATIENT
  Age: 39 Year
  Sex: Female
  Weight: 86 kg

DRUGS (4)
  1. WELLBUTRIN [Suspect]
     Dosage: 150MG PER DAY
     Route: 048
     Dates: start: 20060301
  2. LUPRON DEPOT-3 [Suspect]
     Dosage: 3.75MG IN THE MORNING
     Route: 030
     Dates: start: 20060322
  3. METFORMIN HCL [Concomitant]
     Dosage: 100MG PER DAY
     Route: 048
  4. FLUCONAZOLE [Concomitant]
     Route: 048

REACTIONS (3)
  - ASTHENIA [None]
  - DIZZINESS [None]
  - NAUSEA [None]
